FAERS Safety Report 5302825-7 (Version None)
Quarter: 2007Q2

REPORT INFORMATION
  Report Type: 
  Country: None (occurrence: None)
  Receive Date: 20070419
  Receipt Date: 20070312
  Transmission Date: 20071010
  Serious: Yes (Disabling)
  Sender: FDA-Public Use
  Company Number: US-SANOFI-SYNTHELABO-A03200702332

PATIENT
  Sex: Male

DRUGS (4)
  1. PROVIGIL [Concomitant]
     Indication: DRUG USE FOR UNKNOWN INDICATION
     Dosage: UNK
     Route: 065
  2. CLONAZEPAM [Concomitant]
     Indication: DRUG USE FOR UNKNOWN INDICATION
     Dosage: UNK
     Route: 065
  3. PROZAC [Concomitant]
     Indication: DRUG USE FOR UNKNOWN INDICATION
     Dosage: UNK
     Route: 065
  4. AMBIEN [Suspect]
     Indication: INSOMNIA
     Dosage: 10 MG TO 20 MG/NIGHT
     Route: 048
     Dates: start: 20050101, end: 20050926

REACTIONS (7)
  - AMNESIA [None]
  - APHONIA [None]
  - CRUSH INJURY [None]
  - INJURY [None]
  - PAIN [None]
  - ROAD TRAFFIC ACCIDENT [None]
  - THERMAL BURN [None]
